FAERS Safety Report 16311112 (Version 3)
Quarter: 2019Q2

REPORT INFORMATION
  Report Type: Report from Study
  Country: CO (occurrence: CO)
  Receive Date: 20190514
  Receipt Date: 20190531
  Transmission Date: 20190711
  Serious: Yes (Hospitalization)
  Sender: FDA-Public Use
  Company Number: PHHO2019CO004914

PATIENT
  Age: 43 Year
  Sex: Female
  Weight: 73.2 kg

DRUGS (1)
  1. LDK378 [Suspect]
     Active Substance: CERITINIB
     Indication: INFLAMMATORY MYOFIBROBLASTIC TUMOUR
     Dosage: 600 MG, QD
     Route: 048
     Dates: start: 20190118

REACTIONS (1)
  - Paraparesis [Recovering/Resolving]

NARRATIVE: CASE EVENT DATE: 20190416
